FAERS Safety Report 19710548 (Version 4)
Quarter: 2022Q3

REPORT INFORMATION
  Report Type: Report from Study
  Country: NL (occurrence: NL)
  Receive Date: 20210816
  Receipt Date: 20220818
  Transmission Date: 20221026
  Serious: Yes (Hospitalization)
  Sender: FDA-Public Use
  Company Number: NL-PFIZER INC-202101011506

PATIENT
  Age: 58 Year
  Sex: Male
  Weight: 71.6 kg

DRUGS (3)
  1. SUNITINIB MALATE [Suspect]
     Active Substance: SUNITINIB MALATE
     Indication: Colorectal cancer metastatic
     Dosage: 700 MG, ONCE EVERY TWO WEEKS
     Dates: start: 20210611
  2. OXYCODONE [Concomitant]
     Active Substance: OXYCODONE
     Indication: Pain
     Dosage: OXYCODON MVA 5 MG, 2X/DAY
     Route: 048
     Dates: start: 20210730
  3. OXYCODONE [Concomitant]
     Active Substance: OXYCODONE
     Dosage: OXYCODON, 5 MG AS NEEDED 6X/DAY
     Route: 048
     Dates: start: 20210730

REACTIONS (2)
  - Encephalopathy [Recovered/Resolved]
  - Small intestinal haemorrhage [Recovered/Resolved]

NARRATIVE: CASE EVENT DATE: 20210730
